FAERS Safety Report 16136354 (Version 2)
Quarter: 2019Q3

REPORT INFORMATION
  Report Type: Spontaneous
  Country: US (occurrence: US)
  Receive Date: 20190329
  Receipt Date: 20190902
  Transmission Date: 20191004
  Serious: No
  Sender: FDA-Public Use
  Company Number: US-009507513-1903USA008136

PATIENT
  Age: 59 Year
  Sex: Female

DRUGS (10)
  1. PROVENTIL [Suspect]
     Active Substance: ALBUTEROL
     Indication: CHRONIC OBSTRUCTIVE PULMONARY DISEASE
     Dosage: 2 DOSAGE FORM, EVERY 4 TO 6 HOURS, ORAL INHALATION/ USE SEVERAL TIMES DAILY
     Dates: start: 201901
  2. PROVENTIL [Suspect]
     Active Substance: ALBUTEROL
     Dosage: UNK
  3. IPRATROPIUM BROMIDE. [Concomitant]
     Active Substance: IPRATROPIUM BROMIDE
     Dosage: FORMULATION: NEBULIZER
  4. PROVENTIL [Suspect]
     Active Substance: ALBUTEROL
     Dosage: UNK
  5. PROVENTIL [Suspect]
     Active Substance: ALBUTEROL
     Dosage: UNK
  6. ADVAIR HFA [Concomitant]
     Active Substance: FLUTICASONE PROPIONATE\SALMETEROL XINAFOATE
     Dosage: UNK
  7. PROVENTIL [Suspect]
     Active Substance: ALBUTEROL
     Dosage: 2 DOSAGE FORM, EVERY 4 TO 6 HOURS, ORAL INHALATION/ USE SEVERAL TIMES DAILY
     Dates: start: 201901, end: 201901
  8. PROVENTIL [Suspect]
     Active Substance: ALBUTEROL
     Dosage: UNK
  9. PROVENTIL [Suspect]
     Active Substance: ALBUTEROL
     Dosage: 2 DOSAGE FORM, EVERY 4 TO 6 HOURS, ORAL INHALATION/ USE SEVERAL TIMES DAILY
     Dates: start: 201901, end: 201901
  10. ALBUTEROL. [Concomitant]
     Active Substance: ALBUTEROL
     Dosage: FOR SEVERAL YEARS

REACTIONS (6)
  - Dyspnoea [Recovering/Resolving]
  - Product quality issue [Unknown]
  - Device issue [Unknown]
  - Drug dose omission by device [Unknown]
  - Oropharyngeal pain [Recovering/Resolving]
  - Inappropriate schedule of product administration [Unknown]

NARRATIVE: CASE EVENT DATE: 201901
